FAERS Safety Report 11140281 (Version 1)
Quarter: 2015Q2

REPORT INFORMATION
  Report Type: Spontaneous
  Country: SE (occurrence: SE)
  Receive Date: 20150527
  Receipt Date: 20150527
  Transmission Date: 20150821
  Serious: Yes (Hospitalization)
  Sender: FDA-Public Use
  Company Number: SE-ACTAVIS-2015-10398

PATIENT
  Age: 21 Year
  Sex: Female

DRUGS (1)
  1. CLEOSENSA 28 [Suspect]
     Active Substance: DROSPIRENONE\ETHINYL ESTRADIOL
     Indication: CONTRACEPTION
     Dosage: UNK UNK, DAILY
     Route: 065
     Dates: start: 20141027, end: 20150112

REACTIONS (5)
  - Groin pain [Not Recovered/Not Resolved]
  - Venous thrombosis limb [Unknown]
  - Peripheral swelling [Not Recovered/Not Resolved]
  - Dyspnoea [Not Recovered/Not Resolved]
  - Pulmonary embolism [Unknown]

NARRATIVE: CASE EVENT DATE: 201501
